FAERS Safety Report 21563956 (Version 1)
Quarter: 2022Q4

REPORT INFORMATION
  Report Type: Other
  Country: US (occurrence: None)
  Receive Date: 20221108
  Receipt Date: 20221108
  Transmission Date: 20230112
  Serious: Yes (Hospitalization)
  Sender: FDA-Public Use
  Company Number: US-ROCHE-3204614

PATIENT
  Age: 17 Year
  Sex: Male
  Weight: 72.2 kg

DRUGS (2)
  1. EVRYSDI [Suspect]
     Active Substance: RISDIPLAM
     Indication: Spinal muscular atrophy
     Route: 065
     Dates: start: 20201230, end: 20221002
  2. EVRYSDI [Suspect]
     Active Substance: RISDIPLAM
     Route: 048

REACTIONS (2)
  - Constipation [Unknown]
  - Gastrointestinal infection [Unknown]
